FAERS Safety Report 6364643-0 (Version None)
Quarter: 2009Q3

REPORT INFORMATION
  Report Type: 
  Country: None (occurrence: None)
  Receive Date: 20090919
  Receipt Date: 20090727
  Transmission Date: 20100115
  Serious: No
  Sender: FDA-Public Use
  Company Number: US-ABBOTT-09P-163-0588179-00

PATIENT
  Sex: Female

DRUGS (4)
  1. HUMIRA [Suspect]
     Indication: PSORIATIC ARTHROPATHY
     Dates: start: 20090703
  2. METHOTREXATE [Concomitant]
     Indication: ARTHRITIS
     Dates: start: 20090701
  3. TRILEPTAL [Concomitant]
     Indication: CONVULSION
  4. PREDNISONE [Concomitant]
     Indication: ARTHRITIS
     Dates: start: 20060713

REACTIONS (2)
  - INJECTION SITE HAEMORRHAGE [None]
  - INJECTION SITE IRRITATION [None]
